FAERS Safety Report 4638069-1 (Version None)
Quarter: 2005Q2

REPORT INFORMATION
  Report Type: 
  Country: None (occurrence: None)
  Receive Date: 20050415
  Receipt Date: 20050331
  Transmission Date: 20051028
  Serious: Yes (Hospitalization, Other)
  Sender: FDA-Public Use
  Company Number: 2005BI006907

PATIENT
  Age: 52 Year
  Sex: Female
  Weight: 49.4421 kg

DRUGS (3)
  1. AVONEX [Suspect]
     Indication: MULTIPLE SCLEROSIS
     Dosage: 30 UG; QW; IM
     Route: 030
     Dates: start: 20010101, end: 20030101
  2. AVONEX [Suspect]
     Indication: MULTIPLE SCLEROSIS
     Dosage: 30 UG; QW; IM
     Route: 030
     Dates: start: 20030101
  3. OXYBUTYNIN [Concomitant]

REACTIONS (6)
  - COMA [None]
  - CONVULSION [None]
  - DISEASE RECURRENCE [None]
  - HEADACHE [None]
  - HYPERTENSION [None]
  - WEIGHT DECREASED [None]
